FAERS Safety Report 19075396 (Version 2)
Quarter: 2021Q2

REPORT INFORMATION
  Report Type: Report from Study
  Country: None (occurrence: US)
  Receive Date: 20210331
  Receipt Date: 20210414
  Transmission Date: 20210717
  Serious: No
  Sender: FDA-Public Use
  Company Number: US-ABBVIE-21K-163-3833268-00

PATIENT
  Age: 27 Year
  Sex: Female

DRUGS (2)
  1. HUMIRA [Suspect]
     Active Substance: ADALIMUMAB
     Indication: PSORIATIC ARTHROPATHY
     Dosage: CITRATE FREE
     Route: 058
     Dates: start: 200903
  2. COVID?19 VACCINE NOS. [Suspect]
     Active Substance: COVID-19 VACCINE NOS
     Indication: COVID-19 IMMUNISATION
     Route: 030

REACTIONS (5)
  - Fatigue [Recovered/Resolved]
  - Haemangioma [Not Recovered/Not Resolved]
  - Melanocytic naevus [Unknown]
  - Therapeutic product effect incomplete [Unknown]
  - Ephelides [Not Recovered/Not Resolved]

NARRATIVE: CASE EVENT DATE: 200903
